FAERS Safety Report 5273183-1 (Version None)
Quarter: 2007Q1

REPORT INFORMATION
  Report Type: 
  Country: None (occurrence: None)
  Receive Date: 20070322
  Receipt Date: 20070312
  Transmission Date: 20070707
  Serious: Yes (Hospitalization)
  Sender: FDA-Public Use
  Company Number: JP-ABBOTT-06P-087-0344006-00

PATIENT
  Sex: Female

DRUGS (3)
  1. EURODIN [Suspect]
     Indication: INSOMNIA
     Route: 048
  2. VEGETAMIN B [Suspect]
     Indication: INSOMNIA
     Route: 048
     Dates: start: 20051001, end: 20051122
  3. ETIZOLAM [Suspect]
     Indication: INSOMNIA
     Route: 048

REACTIONS (4)
  - AGRANULOCYTOSIS [None]
  - PHARYNGOLARYNGEAL PAIN [None]
  - PYREXIA [None]
  - RASH [None]
